FAERS Safety Report 25376477 (Version 2)
Quarter: 2025Q3

REPORT INFORMATION
  Report Type: Report from Study
  Country: US (occurrence: US)
  Receive Date: 20250529
  Receipt Date: 20250704
  Transmission Date: 20251020
  Serious: Yes (Other)
  Sender: TAKEDA
  Company Number: US-TAKEDA-2025TUS045309

PATIENT
  Age: 84 Year
  Sex: Female

DRUGS (4)
  1. TEDUGLUTIDE [Suspect]
     Active Substance: TEDUGLUTIDE
     Indication: Short-bowel syndrome
  2. TEDUGLUTIDE [Suspect]
     Active Substance: TEDUGLUTIDE
  3. TEDUGLUTIDE [Suspect]
     Active Substance: TEDUGLUTIDE
  4. TEDUGLUTIDE [Suspect]
     Active Substance: TEDUGLUTIDE

REACTIONS (16)
  - Constipation [Not Recovered/Not Resolved]
  - Underweight [Unknown]
  - Product distribution issue [Unknown]
  - Dyspepsia [Unknown]
  - Chest discomfort [Unknown]
  - Contusion [Unknown]
  - Peripheral swelling [Unknown]
  - Blood pressure increased [Unknown]
  - Product container issue [Unknown]
  - Device issue [Unknown]
  - Product closure issue [Unknown]
  - Diarrhoea [Recovered/Resolved]
  - Nausea [Unknown]
  - Gastrointestinal pain [Not Recovered/Not Resolved]
  - Product dose omission issue [Unknown]
  - Device connection issue [Recovered/Resolved]

NARRATIVE: CASE EVENT DATE: 20250522
